FAERS Safety Report 5320755-1 (Version None)
Quarter: 2007Q2

REPORT INFORMATION
  Report Type: 
  Country: None (occurrence: None)
  Receive Date: 20070509
  Receipt Date: 20070430
  Transmission Date: 20071010
  Serious: Yes (Other)
  Sender: FDA-Public Use
  Company Number: DE-PFIZER INC-2007036081

PATIENT
  Age: 25 Year
  Sex: Male

DRUGS (3)
  1. ZELDOX (CAPSULES) [Interacting]
  2. SOLIAN [Interacting]
  3. HALDOL [Suspect]

REACTIONS (3)
  - DRUG INTERACTION [None]
  - ELECTROCARDIOGRAM QT PROLONGED [None]
  - PSYCHOTIC DISORDER [None]
